FAERS Safety Report 24896967 (Version 1)
Quarter: 2025Q1

REPORT INFORMATION
  Report Type: Spontaneous
  Country: US (occurrence: US)
  Receive Date: 20250128
  Receipt Date: 20250128
  Transmission Date: 20250409
  Serious: No
  Sender: AMGEN
  Company Number: US-AMGEN-USASP2025012948

PATIENT
  Age: 54 Year
  Sex: Female

DRUGS (3)
  1. TEPEZZA [Suspect]
     Active Substance: TEPROTUMUMAB-TRBW
     Indication: Endocrine ophthalmopathy
     Route: 040
     Dates: start: 202407
  2. TEPEZZA [Suspect]
     Active Substance: TEPROTUMUMAB-TRBW
     Route: 040
     Dates: start: 2024
  3. TEPEZZA [Suspect]
     Active Substance: TEPROTUMUMAB-TRBW
     Route: 040
     Dates: start: 202412, end: 202412

REACTIONS (3)
  - Therapy non-responder [Unknown]
  - Blood pressure fluctuation [Recovering/Resolving]
  - Muscle spasms [Recovering/Resolving]

NARRATIVE: CASE EVENT DATE: 20240101
